FAERS Safety Report 8437068-1 (Version None)
Quarter: 2012Q2

REPORT INFORMATION
  Report Type: 
  Country: None (occurrence: None)
  Receive Date: 20120614
  Receipt Date: 20120229
  Transmission Date: 20120825
  Serious: No
  Sender: FDA-Public Use
  Company Number: US-AMGEN-USASP2011017664

PATIENT
  Age: 66 Year
  Sex: Male

DRUGS (1)
  1. XGEVA [Suspect]
     Indication: METASTASES TO BONE
     Dosage: UNK
     Dates: start: 20110301

REACTIONS (1)
  - ACCIDENTAL EXPOSURE [None]
